FAERS Safety Report 4421776-3 (Version None)
Quarter: 2004Q3

REPORT INFORMATION
  Report Type: 
  Country: None (occurrence: None)
  Receive Date: 20040809
  Receipt Date: 20040809
  Transmission Date: 20050211
  Serious: Yes (Hospitalization)
  Sender: FDA-Public Use
  Company Number: None

PATIENT
  Age: 82 Year
  Sex: Male
  Weight: 80.7403 kg

DRUGS (10)
  1. LOVENOX [Suspect]
     Indication: ANTICOAGULANT THERAPY
     Dosage: 80 MG Q 12H SUBCUTANEOUS
     Route: 058
     Dates: start: 20040619, end: 20040622
  2. FERROUS SULFATE TAB [Concomitant]
  3. FUROSEMIDE [Concomitant]
  4. HYDROCHLOROTHIAZIDE [Concomitant]
  5. LISINOPRIL [Concomitant]
  6. POTASSIUM CHLORIDE [Concomitant]
  7. SENNOSIDES [Concomitant]
  8. TAMSULOSIN [Concomitant]
  9. TEMAZEPAM [Concomitant]
  10. TRAVOPROST OPTH SOL [Concomitant]

REACTIONS (5)
  - EPISTAXIS [None]
  - HAEMATOCRIT DECREASED [None]
  - IMPLANT SITE HAEMORRHAGE [None]
  - INTERNATIONAL NORMALISED RATIO INCREASED [None]
  - INTESTINAL HAEMORRHAGE [None]
